FAERS Safety Report 9832142 (Version 2)
Quarter: 2014Q1

REPORT INFORMATION
  Report Type: Spontaneous
  Country: US (occurrence: US)
  Receive Date: 20140121
  Receipt Date: 20140207
  Transmission Date: 20141002
  Serious: Yes (Other)
  Sender: FDA-Public Use
  Company Number: PHEH2014US001324

PATIENT
  Sex: Female

DRUGS (43)
  1. SANDOSTATIN [Suspect]
     Indication: CARCINOID SYNDROME
  2. SANDOSTATIN [Suspect]
     Indication: ACROMEGALY
  3. SANDOSTATIN [Suspect]
     Indication: PITUITARY TUMOUR BENIGN
  4. COMBIVENT RESPIMAT [Concomitant]
     Dosage: UNK UKN, UNK
     Dates: start: 20130903
  5. COMBIVENT RESPIMAT [Concomitant]
     Dosage: UNK UKN, UNK
     Dates: start: 20131002
  6. COMBIVENT RESPIMAT [Concomitant]
     Dosage: UNK UKN, UNK
     Dates: start: 20131029
  7. LEVOTHYROXINE [Concomitant]
     Dosage: 0.025 MG, UNK
     Dates: start: 20130903
  8. LEVOTHYROXINE [Concomitant]
     Dosage: 0.025 MG, UNK
     Dates: start: 20131002
  9. LEVOTHYROXINE [Concomitant]
     Dosage: 0.05 MG, UNK
     Dates: start: 20131022
  10. NYSTATIN [Concomitant]
     Dosage: UNK UKN, UNK
     Dates: start: 20130910
  11. NYSTATIN [Concomitant]
     Dosage: UNK UKN, UNK
     Dates: start: 20131024
  12. AMOX+AC CLAV ACV [Concomitant]
     Dosage: 875/125 MG
     Dates: start: 20130918
  13. AMOX+AC CLAV ACV [Concomitant]
     Dosage: 875/125 MG
     Dates: start: 20131011
  14. PREDNISONE [Concomitant]
     Dosage: UNK UKN, UNK
     Dates: start: 20130918
  15. PREDNISONE [Concomitant]
     Dosage: UNK UKN, UNK
     Dates: start: 20131002
  16. IRBESARTAN [Concomitant]
     Dosage: UNK UKN, UNK
     Dates: start: 20130923
  17. IRBESARTAN [Concomitant]
     Dosage: UNK UKN, UNK
     Dates: start: 20131016
  18. FERROUS SULPHATE [Concomitant]
     Dosage: UNK UKN, UNK
     Dates: start: 20130923
  19. DULERA [Concomitant]
     Dosage: 200- 5 MCG
     Dates: start: 20130923
  20. DULERA [Concomitant]
     Dosage: 200- 5 MCG
     Dates: start: 20131024
  21. ALPRAZOLAM [Concomitant]
     Dosage: UNK UKN, UNK
     Dates: start: 20130923
  22. ALPRAZOLAM [Concomitant]
     Dosage: UNK UKN, UNK
     Dates: start: 20131024
  23. MIRTAZAPINE [Concomitant]
     Dosage: 15 MG, UNK
     Dates: start: 20130923
  24. MIRTAZAPINE [Concomitant]
     Dosage: 15 MG, UNK
     Dates: start: 20131024
  25. FLUTICASONE [Concomitant]
     Dosage: UNK UKN, UNK
     Dates: start: 20130923
  26. FLUTICASONE [Concomitant]
     Dosage: UNK UKN, UNK
     Dates: start: 20131024
  27. OXYCONTIN [Concomitant]
     Dosage: UNK UKN, UNK
     Dates: start: 20130923
  28. OXYCONTIN [Concomitant]
     Dosage: UNK UKN, UNK
     Dates: start: 20131021
  29. LORAZEPAM [Concomitant]
     Dosage: UNK UKN, UNK
     Dates: start: 20130923
  30. NEXIUM [Concomitant]
     Dosage: UNK UKN, UNK
     Dates: start: 20130924
  31. NEXIUM [Concomitant]
     Dosage: UNK UKN, UNK
     Dates: start: 20131025
  32. OXYCODONE [Concomitant]
     Dosage: UNK UKN, UNK
     Dates: start: 20130925
  33. OXYCODONE [Concomitant]
     Dosage: UNK UKN, UNK
     Dates: start: 20131025
  34. FLOVENT HFA [Concomitant]
     Dosage: 12 G, UNK
     Dates: start: 20131002
  35. FLOVENT HFA [Concomitant]
     Dosage: 12 G, UNK
     Dates: start: 20131029
  36. CEFUROXIME [Concomitant]
     Dosage: UNK UKN, UNK
     Dates: start: 20131002
  37. WARFARIN SODIUM [Concomitant]
     Dosage: 2 MG, UNK
     Dates: start: 20131016
  38. WARFARIN SODIUM [Concomitant]
     Dosage: 1 MG, UNK
     Dates: start: 20131016
  39. NIFEDIPINE [Concomitant]
     Dosage: UNK UKN, UNK
  40. GABAPENTIN [Concomitant]
     Dosage: UNK UKN, UNK
     Dates: start: 20131021
  41. HYDROCORTISONE [Concomitant]
     Dosage: 10 MG, UNK
  42. CYCLOBENZAPRINE [Concomitant]
     Dosage: 10 MG, UNK
     Dates: start: 20131024
  43. TOPIRAMATE [Concomitant]
     Dosage: 25 MG, UNK
     Dates: start: 20131024

REACTIONS (22)
  - Cardiac failure [Unknown]
  - Neoplasm recurrence [Unknown]
  - Diplegia [Unknown]
  - Disease progression [Unknown]
  - Hypertension [Unknown]
  - Bone disorder [Unknown]
  - Dizziness [Unknown]
  - Jaw disorder [Unknown]
  - Tongue disorder [Unknown]
  - Foot deformity [Unknown]
  - Finger deformity [Unknown]
  - Hyperlipidaemia [Unknown]
  - Weight decreased [Unknown]
  - Headache [Unknown]
  - Vision blurred [Unknown]
  - Fatigue [Unknown]
  - Dry skin [Unknown]
  - Back pain [Unknown]
  - Pain [Unknown]
  - Oedema peripheral [Unknown]
  - Arthritis [Unknown]
  - Gastrointestinal disorder [Unknown]
